FAERS Safety Report 8152025-0 (Version None)
Quarter: 2012Q1

REPORT INFORMATION
  Report Type: 
  Country: None (occurrence: None)
  Receive Date: 20120214
  Receipt Date: 20120130
  Transmission Date: 20120608
  Serious: Yes (Life-Threatening, Other)
  Sender: FDA-Public Use
  Company Number: 1000028093

PATIENT
  Sex: Female
  Weight: 2.67 kg

DRUGS (11)
  1. LEXOTAN (BROMAZEPAM) (BROMAZEPAM) [Concomitant]
  2. RISPERIDONE [Concomitant]
  3. LEKRICA (CHLORPHENAMINE MALEATE) (CHLORPHENAMINE MALEATE) [Concomitant]
  4. GOODMIN (BROTIZOLAM) (BROTIZOLAM) [Concomitant]
  5. HALRACK (TRIAZOLAM) (TRIAZOLAM) [Concomitant]
  6. SOLANAX (ALPRAZOLAM) (ALPRAZOLAM) [Concomitant]
  7. LEXAPRO [Suspect]
     Dosage: 10 MG (10 MG, 1 IN 1 D),TRANSPLACENTAL ; 20 MG (20 MG, 1 IN 1 D),TRANSPLACENTAL
  8. SILECE (FLUNITRAZEPAM) (FLUNITRAZEPAM) [Concomitant]
  9. ZOLOFT (SERTRALINE HYDROCHLORIDE) (SETRALINE HYDROCHLORIDE) [Concomitant]
  10. REFLEX (MIRTAZAPINE) (MIRTAZAPINE) [Concomitant]
  11. LEVOTOMIN (LEVOMEPROMAZINE MALEATE) (LEVOMEPROMAZINE MALEATE) [Concomitant]

REACTIONS (4)
  - MATERNAL DRUGS AFFECTING FOETUS [None]
  - CONVULSION NEONATAL [None]
  - NEONATAL ASPHYXIA [None]
  - CAESAREAN SECTION [None]
